FAERS Safety Report 7943956-2 (Version None)
Quarter: 2011Q4

REPORT INFORMATION
  Report Type: 
  Country: None (occurrence: None)
  Receive Date: 20111128
  Receipt Date: 20111121
  Transmission Date: 20120403
  Serious: Yes (Hospitalization, Other)
  Sender: FDA-Public Use
  Company Number: CA-ROCHE-GNE296436

PATIENT
  Sex: Female
  Weight: 36.039 kg

DRUGS (11)
  1. XOLAIR [Suspect]
     Dosage: 375 MG, Q2W
     Route: 058
     Dates: start: 20091109
  2. XOLAIR [Suspect]
     Dosage: 375 MG, Q2W
     Route: 058
     Dates: start: 20100104
  3. STEROIDS (UNK INGREDIENTS) [Concomitant]
     Indication: PRODUCT USED FOR UNKNOWN INDICATION
  4. ADVAIR DISKUS 100/50 [Concomitant]
     Indication: PRODUCT USED FOR UNKNOWN INDICATION
     Dosage: 125 A?G, UNK
  5. XOLAIR [Suspect]
     Dosage: 375 MG, Q2W
     Route: 058
     Dates: start: 20091123
  6. INFLUENZA VACCINE [Concomitant]
     Indication: PRODUCT USED FOR UNKNOWN INDICATION
  7. INSULIN [Concomitant]
     Indication: PRODUCT USED FOR UNKNOWN INDICATION
  8. XOLAIR [Suspect]
     Dosage: 375 MG, Q2W
     Route: 058
     Dates: start: 20100215
  9. XOLAIR [Suspect]
     Indication: ASTHMA
     Dosage: 375 MG, Q2W
     Route: 058
     Dates: start: 20070101
  10. XOLAIR [Suspect]
     Dosage: 375 MG, Q2W
     Dates: start: 20100301
  11. VENTOLIN [Concomitant]
     Indication: PRODUCT USED FOR UNKNOWN INDICATION

REACTIONS (13)
  - CONFUSIONAL STATE [None]
  - HYPOGLYCAEMIA [None]
  - BRONCHITIS [None]
  - DIABETIC COMA [None]
  - COUGH [None]
  - NASOPHARYNGITIS [None]
  - DYSPNOEA [None]
  - CHEST DISCOMFORT [None]
  - TREMOR [None]
  - DYSPHONIA [None]
  - SPUTUM DISCOLOURED [None]
  - MALAISE [None]
  - EAR INFECTION [None]
